FAERS Safety Report 10064453 (Version 2)
Quarter: 2014Q2

REPORT INFORMATION
  Report Type: Report from Study
  Country: IT (occurrence: IT)
  Receive Date: 20140408
  Receipt Date: 20140422
  Transmission Date: 20141212
  Serious: Yes (Hospitalization)
  Sender: FDA-Public Use
  Company Number: IT-ROCHE-1378385

PATIENT
  Age: 56 Year
  Sex: Female
  Weight: 47 kg

DRUGS (8)
  1. BEVACIZUMAB [Suspect]
     Indication: COLORECTAL CANCER METASTATIC
     Dosage: DATE OF LAST DOSE PRIOR TO SAE: 13/FEB/2014?PERMANENTLY DISCONTINUED ON 25/MAR/2014
     Route: 042
     Dates: start: 20131212, end: 20140325
  2. CYCLOPHOSPHAMIDE [Suspect]
     Indication: COLORECTAL CANCER METASTATIC
     Dosage: DATE OF LAST DOSE PRIOR TO SAE: 13/FEB/2014?PERMANENTLY DISCONTINUED ON 25/MAR/2014
     Route: 048
     Dates: start: 20131212, end: 20140325
  3. CAPECITABINE [Suspect]
     Indication: COLORECTAL CANCER METASTATIC
     Dosage: DATE OF LAST DOSE PRIOR TO SAE: 13/FEB/2014?PERMANENTLY DISCONTINUED ON 25/MAR/2014
     Route: 048
     Dates: start: 20131212, end: 20140325
  4. PERFALGAN [Concomitant]
     Dosage: TOTAL DAILY DOSE: 1 VIAL
     Route: 065
     Dates: start: 20140305, end: 20140305
  5. TACHIDOL [Concomitant]
     Route: 065
     Dates: start: 20140305, end: 20140305
  6. KETOPROFEN [Concomitant]
     Dosage: TOTAL DAILY DOSE:100 CC
     Route: 065
     Dates: start: 20140305, end: 20140305
  7. DELTACORTENE [Concomitant]
     Route: 065
     Dates: start: 20140305, end: 20140305
  8. LANSOPRAZOLE [Concomitant]
     Route: 065
     Dates: start: 20140305, end: 20140305

REACTIONS (2)
  - Pyrexia [Recovered/Resolved]
  - Enteritis [Recovered/Resolved]
